FAERS Safety Report 8124883-7 (Version None)
Quarter: 2012Q1

REPORT INFORMATION
  Report Type: 
  Country: None (occurrence: None)
  Receive Date: 20120209
  Receipt Date: 20120207
  Transmission Date: 20120608
  Serious: Yes (Hospitalization)
  Sender: FDA-Public Use
  Company Number: US-BAYER-2012-012688

PATIENT
  Sex: Female

DRUGS (3)
  1. CONTRACEPTIVES NOS [Suspect]
     Dosage: UNK
     Dates: start: 20070301, end: 20070904
  2. YAZ [Suspect]
     Dosage: UNK
     Dates: start: 20060101, end: 20090101
  3. YASMIN [Suspect]
     Dosage: UNK
     Dates: start: 20060101, end: 20090101

REACTIONS (4)
  - GALLBLADDER DISORDER [None]
  - PAIN [None]
  - CHOLECYSTITIS CHRONIC [None]
  - CHOLELITHIASIS [None]
